FAERS Safety Report 6401788-0 (Version None)
Quarter: 2009Q4

REPORT INFORMATION
  Report Type: 
  Country: None (occurrence: None)
  Receive Date: 20091013
  Receipt Date: 20091013
  Transmission Date: 20100525
  Serious: Yes (Other)
  Sender: FDA-Public Use
  Company Number: None

PATIENT
  Age: 59 Year
  Sex: Male
  Weight: 86.637 kg

DRUGS (1)
  1. CHANTIX [Suspect]
     Indication: SMOKING CESSATION THERAPY
     Dosage: 1MG 2/DAY PO
     Route: 048
     Dates: start: 20090707, end: 20090721

REACTIONS (9)
  - ACTIVITIES OF DAILY LIVING IMPAIRED [None]
  - ANXIETY [None]
  - DEPRESSION [None]
  - DYSGEUSIA [None]
  - PAIN OF SKIN [None]
  - PARAESTHESIA [None]
  - PAROSMIA [None]
  - SEXUAL DYSFUNCTION [None]
  - VISION BLURRED [None]
